APPROVED DRUG PRODUCT: SENSORCAINE
Active Ingredient: BUPIVACAINE HYDROCHLORIDE
Strength: 0.25%
Dosage Form/Route: INJECTABLE;INJECTION
Application: A070552 | Product #001 | TE Code: AP
Applicant: FRESENIUS KABI USA LLC
Approved: May 21, 1986 | RLD: No | RS: No | Type: RX